FAERS Safety Report 25541543 (Version 4)
Quarter: 2025Q3

REPORT INFORMATION
  Report Type: Spontaneous
  Country: EU (occurrence: EU)
  Receive Date: 20250711
  Receipt Date: 20250917
  Transmission Date: 20251020
  Serious: Yes (Other)
  Sender: JOHNSON AND JOHNSON
  Company Number: EU-JNJFOC-20250341156

PATIENT
  Age: 71 Year
  Sex: Female
  Weight: 42 kg

DRUGS (8)
  1. RYBREVANT [Suspect]
     Active Substance: AMIVANTAMAB-VMJW
     Indication: Non-small cell lung cancer metastatic
     Route: 065
     Dates: start: 20250312
  2. RYBREVANT [Suspect]
     Active Substance: AMIVANTAMAB-VMJW
     Route: 042
     Dates: start: 20250312
  3. RYBREVANT [Suspect]
     Active Substance: AMIVANTAMAB-VMJW
  4. RYBREVANT [Suspect]
     Active Substance: AMIVANTAMAB-VMJW
     Route: 042
  5. RYBREVANT [Suspect]
     Active Substance: AMIVANTAMAB-VMJW
  6. RYBREVANT [Suspect]
     Active Substance: AMIVANTAMAB-VMJW
     Route: 042
  7. CARBOPLATIN [Concomitant]
     Active Substance: CARBOPLATIN
     Indication: Product used for unknown indication
     Dates: end: 20250604
  8. PEMETREXED [Concomitant]
     Active Substance: PEMETREXED
     Indication: Product used for unknown indication

REACTIONS (5)
  - Non-small cell lung cancer [Unknown]
  - Paronychia [Unknown]
  - Skin toxicity [Unknown]
  - Adverse reaction [Unknown]
  - Off label use [Unknown]

NARRATIVE: CASE EVENT DATE: 20250409
